FAERS Safety Report 9502680 (Version 2)
Quarter: 2013Q3

REPORT INFORMATION
  Report Type: Spontaneous
  Country: JP (occurrence: JP)
  Receive Date: 20130906
  Receipt Date: 20130906
  Transmission Date: 20140515
  Serious: Yes (Hospitalization)
  Sender: FDA-Public Use
  Company Number: JP-EISAI INC-E2020-12741-SPO-JP

PATIENT
  Age: 82 Year
  Sex: Male

DRUGS (6)
  1. ARICEPT [Suspect]
     Indication: DEMENTIA
     Route: 048
     Dates: start: 201201, end: 20121102
  2. LONASEN [Suspect]
     Indication: DEMENTIA
     Route: 048
     Dates: start: 20120112, end: 20121102
  3. GRAMALIL [Suspect]
     Indication: DEMENTIA
     Route: 048
     Dates: start: 20120119, end: 20121102
  4. ALOSENN [Concomitant]
     Indication: CONSTIPATION
     Route: 048
     Dates: start: 20120106, end: 20121102
  5. PLAVIX [Concomitant]
     Indication: PROPHYLAXIS
     Route: 048
     Dates: start: 20120621, end: 20121102
  6. FRANDOL [Concomitant]
     Indication: PROPHYLAXIS
     Route: 048
     Dates: start: 20120604, end: 20121102

REACTIONS (1)
  - Rhabdomyolysis [Recovered/Resolved]
